FAERS Safety Report 7058565-X (Version None)
Quarter: 2010Q4

REPORT INFORMATION
  Report Type: 
  Country: None (occurrence: None)
  Receive Date: 20101022
  Receipt Date: 20101018
  Transmission Date: 20110411
  Serious: Yes (Other)
  Sender: FDA-Public Use
  Company Number: A0871957A

PATIENT
  Age: 70 Year
  Sex: Female

DRUGS (1)
  1. PROMACTA [Suspect]
     Dosage: 50MG PER DAY
     Route: 048
     Dates: start: 20100214, end: 20100711

REACTIONS (3)
  - ANAEMIA [None]
  - FEELING COLD [None]
  - NEUROPATHY PERIPHERAL [None]
